FAERS Safety Report 9134869 (Version 1)
Quarter: 2013Q1

REPORT INFORMATION
  Report Type: Spontaneous
  Country: US (occurrence: US)
  Receive Date: 20130304
  Receipt Date: 20130304
  Transmission Date: 20140127
  Serious: No
  Sender: FDA-Public Use
  Company Number: US-ENDO PHARMACEUTICALS INC.-ENDC20110028

PATIENT
  Sex: Female
  Weight: 145.28 kg

DRUGS (2)
  1. ENDOCET [Suspect]
     Indication: PRODUCT USED FOR UNKNOWN INDICATION
     Dosage: 40/2600 MG
     Route: 048
     Dates: start: 2009, end: 201104
  2. ENDOCET [Suspect]
     Dosage: 30/1950 MG
     Route: 048
     Dates: start: 201104

REACTIONS (1)
  - Drug level decreased [Unknown]
